FAERS Safety Report 5577366-2 (Version None)
Quarter: 2007Q4

REPORT INFORMATION
  Report Type: 
  Country: None (occurrence: None)
  Receive Date: 20071228
  Receipt Date: 20071217
  Transmission Date: 20080405
  Serious: Yes (Other)
  Sender: FDA-Public Use
  Company Number: US-PFIZER INC-2007096442

PATIENT
  Sex: Female

DRUGS (1)
  1. CHANTIX [Suspect]
     Indication: SMOKING CESSATION THERAPY

REACTIONS (9)
  - ABDOMINAL DISTENSION [None]
  - ABNORMAL DREAMS [None]
  - ACTIVITIES OF DAILY LIVING IMPAIRED [None]
  - CIRCADIAN RHYTHM SLEEP DISORDER [None]
  - CONSTIPATION [None]
  - FLATULENCE [None]
  - MIDDLE INSOMNIA [None]
  - SOMNOLENCE [None]
  - VISION BLURRED [None]
